FAERS Safety Report 9168529 (Version 2)
Quarter: 2013Q4

REPORT INFORMATION
  Report Type: Spontaneous
  Country: US (occurrence: US)
  Receive Date: 20130318
  Receipt Date: 20131119
  Transmission Date: 20140711
  Serious: Yes (Hospitalization, Other)
  Sender: FDA-Public Use
  Company Number: US-009507513-1303USA007496

PATIENT
  Sex: Female

DRUGS (6)
  1. FOSAMAX [Suspect]
     Indication: OSTEOPOROSIS
     Dosage: 70 MG, QW
     Route: 048
  2. FOSAMAX PLUS D [Suspect]
     Indication: OSTEOPOROSIS
     Route: 048
  3. VITAMINS (UNSPECIFIED) [Concomitant]
     Dosage: UNK, QD
     Dates: start: 1988
  4. SYNTHROID [Concomitant]
     Indication: HYPOTHYROIDISM
     Dosage: UNK
     Dates: start: 1985
  5. HORMONES (UNSPECIFIED) [Concomitant]
     Dosage: UNK
     Dates: start: 1993, end: 1998
  6. LEVOXYL [Concomitant]
     Indication: HYPOTHYROIDISM

REACTIONS (31)
  - Femur fracture [Unknown]
  - Intramedullary rod insertion [Unknown]
  - Femur fracture [Unknown]
  - Intramedullary rod insertion [Unknown]
  - Femur fracture [Unknown]
  - Removal of internal fixation [Unknown]
  - Intramedullary rod insertion [Unknown]
  - Myocardial infarction [Unknown]
  - Myocardial infarction [Unknown]
  - Cholecystectomy [Unknown]
  - Low turnover osteopathy [Unknown]
  - Barrett^s oesophagus [Unknown]
  - Chronic obstructive pulmonary disease [Unknown]
  - Postoperative fever [Unknown]
  - Atelectasis [Unknown]
  - Bacterial test positive [Unknown]
  - Anaemia postoperative [Unknown]
  - Blood potassium decreased [Recovered/Resolved]
  - Osteoarthritis [Unknown]
  - Bronchitis [Unknown]
  - Cardiac murmur [Not Recovered/Not Resolved]
  - Osteogenesis imperfecta [Unknown]
  - Hyperlipidaemia [Unknown]
  - Temporomandibular joint syndrome [Unknown]
  - Intermittent claudication [Unknown]
  - Aortic valve sclerosis [Unknown]
  - Hypertension [Unknown]
  - Haemorrhagic anaemia [Unknown]
  - Radiculopathy [Unknown]
  - Gastrooesophageal reflux disease [Unknown]
  - Back pain [Not Recovered/Not Resolved]
